FAERS Safety Report 7941877-2 (Version None)
Quarter: 2011Q4

REPORT INFORMATION
  Report Type: 
  Country: None (occurrence: None)
  Receive Date: 20111128
  Receipt Date: 20111122
  Transmission Date: 20120403
  Serious: Yes (Death, Other)
  Sender: FDA-Public Use
  Company Number: BR-BAYER-2011-098356

PATIENT
  Age: 60 Year
  Sex: Male
  Weight: 81 kg

DRUGS (5)
  1. BARACLUDE [Concomitant]
     Indication: HEPATITIS B
     Dosage: 1 DF, QD
     Route: 048
     Dates: start: 20111006
  2. LEVOTHYROXINE SODIUM [Concomitant]
     Indication: HYPERTHYROIDISM
     Dosage: 1 DF, QD
     Route: 048
     Dates: start: 20111006
  3. URSACOL [Concomitant]
     Indication: BLOOD BILIRUBIN ABNORMAL
     Dosage: 1 DF, BID
     Route: 048
     Dates: start: 20111006
  4. NEXAVAR [Suspect]
     Indication: HEPATIC NEOPLASM MALIGNANT
     Dosage: 400 MG, BID
     Route: 048
     Dates: start: 20111006
  5. LASIX [Concomitant]
     Indication: ASCITES
     Dosage: 1 DF, QD
     Route: 048
     Dates: start: 20110901

REACTIONS (7)
  - HICCUPS [None]
  - ASTHENIA [None]
  - ABDOMINAL PAIN [None]
  - DEATH [None]
  - NAUSEA [None]
  - DECREASED APPETITE [None]
  - CONFUSIONAL STATE [None]
